FAERS Safety Report 9637100 (Version 4)
Quarter: 2014Q2

REPORT INFORMATION
  Report Type: Spontaneous
  Country: US (occurrence: US)
  Receive Date: 20131022
  Receipt Date: 20140415
  Transmission Date: 20141212
  Serious: Yes (Hospitalization, Other)
  Sender: FDA-Public Use
  Company Number: US-BRISTOL-MYERS SQUIBB COMPANY-19548759

PATIENT
  Age: 72 Year
  Sex: Female

DRUGS (30)
  1. BYETTA [Suspect]
     Indication: TYPE 2 DIABETES MELLITUS
     Dates: start: 20070709, end: 200806
  2. JANUVIA [Suspect]
     Indication: TYPE 2 DIABETES MELLITUS
     Dates: start: 20070425, end: 200706
  3. ATENOLOL [Concomitant]
     Dosage: 50MG IN MRNG? 25MG IN EVE
  4. ASPIRIN [Concomitant]
  5. LIPASE [Concomitant]
     Dosage: 1DF: 6 CAPS
  6. AMYLASE + PROTEASE [Concomitant]
     Dosage: 1DF: 6 CAPS
  7. AMLODIPINE [Concomitant]
  8. POTASSIUM [Concomitant]
  9. NORVASC [Concomitant]
  10. CREON [Concomitant]
     Dosage: 1DF: 24.000 UNITS NOS
  11. TENORMIN [Concomitant]
  12. VYTORIN [Concomitant]
     Dosage: 1DF: 10/40 UNITS NOS
  13. NOVOLOG [Concomitant]
  14. LANTUS [Concomitant]
     Dosage: 1 DF: 10 UNITS NOS
     Route: 058
  15. SYNTHROID [Concomitant]
  16. FENOFIBRATE [Concomitant]
  17. LOMOTIL [Concomitant]
     Dosage: 1TAB/4 HOUR
  18. ASPIRIN [Concomitant]
  19. PRILOSEC [Concomitant]
  20. POTASSIUM CITRATE [Concomitant]
  21. PHENERGAN [Concomitant]
     Dosage: 1/6HRS
  22. ULTRAM [Concomitant]
  23. CARDURA [Concomitant]
  24. EMLA [Concomitant]
     Route: 061
  25. PROMETHAZINE [Concomitant]
  26. CLARITIN [Concomitant]
  27. BENADRYL [Concomitant]
  28. BETAMETHASONE + CLOTRIMAZOLE [Concomitant]
  29. VICODIN [Concomitant]
     Dosage: 300MG TAB
  30. CALCIUM + VITAMIN D [Concomitant]

REACTIONS (1)
  - Adenocarcinoma pancreas [Unknown]
